FAERS Safety Report 21438206 (Version 2)
Quarter: 2023Q1

REPORT INFORMATION
  Report Type: Report from Study
  Country: US (occurrence: US)
  Receive Date: 20221011
  Receipt Date: 20230117
  Transmission Date: 20230418
  Serious: No
  Sender: FDA-Public Use
  Company Number: US-ABBVIE-4138326

PATIENT
  Sex: Male

DRUGS (3)
  1. SKYRIZI [Suspect]
     Active Substance: RISANKIZUMAB-RZAA
     Indication: Psoriasis
     Dosage: WEEK 0, WEEK 4, THEN EVERY 12 WEEKS
     Route: 058
     Dates: start: 20220114
  2. SKYRIZI [Suspect]
     Active Substance: RISANKIZUMAB-RZAA
     Dosage: WEEK 0, WEEK 4, THEN EVERY 12 WEEKS, FIRST ADMINISTRATION DATE WAS 2022
     Route: 058
     Dates: end: 20221014
  3. SKYRIZI [Suspect]
     Active Substance: RISANKIZUMAB-RZAA

REACTIONS (3)
  - Eczema [Unknown]
  - Psoriasis [Unknown]
  - Drug ineffective [Unknown]
